FAERS Safety Report 12867272 (Version 1)
Quarter: 2016Q4

REPORT INFORMATION
  Report Type: Spontaneous
  Country: US (occurrence: US)
  Receive Date: 20161020
  Receipt Date: 20161020
  Transmission Date: 20170207
  Serious: No
  Sender: FDA-Public Use
  Company Number: US-SHIRE-US201614788

PATIENT
  Age: 34 Year
  Sex: Female

DRUGS (1)
  1. ELAPRASE [Suspect]
     Active Substance: IDURSULFASE
     Indication: MUCOPOLYSACCHARIDOSIS II
     Dosage: 48 MG, 1X/WEEK (EVERY WEEK FOR 3 WEEKS)
     Route: 041
     Dates: start: 20160127

REACTIONS (3)
  - Drug dose omission [Unknown]
  - Bed bug infestation [Unknown]
  - Device issue [Unknown]

NARRATIVE: CASE EVENT DATE: 201608
